FAERS Safety Report 9682225 (Version 1)
Quarter: 2013Q4

REPORT INFORMATION
  Report Type: Report from Study
  Country: US (occurrence: US)
  Receive Date: 20131112
  Receipt Date: 20131112
  Transmission Date: 20140711
  Serious: Yes (Other)
  Sender: FDA-Public Use
  Company Number: US-AMGEN-USANI2013078401

PATIENT
  Age: 49 Year
  Sex: Female

DRUGS (8)
  1. XGEVA [Suspect]
     Indication: PRODUCT USED FOR UNKNOWN INDICATION
     Dosage: UNK
     Route: 065
  2. DENOSUMAB [Suspect]
     Indication: PRODUCT USED FOR UNKNOWN INDICATION
     Route: 065
  3. EFFEXOR [Concomitant]
     Dosage: 75 MG, QD
     Route: 048
  4. SYNTHROID [Concomitant]
     Dosage: 50 MUG, QD
     Route: 048
  5. FEMARA [Concomitant]
     Dosage: 2.5 MG, QD
     Route: 048
  6. ROBITUSSIN                         /00048001/ [Concomitant]
     Indication: COUGH
     Dosage: 10 ML, Q4H
  7. ZOMETA [Concomitant]
     Dosage: UNK UNK, Q6WK
  8. DIOVAN [Concomitant]

REACTIONS (1)
  - Osteonecrosis of jaw [Not Recovered/Not Resolved]
